FAERS Safety Report 4931349-1 (Version None)
Quarter: 2006Q1

REPORT INFORMATION
  Report Type: 
  Country: None (occurrence: None)
  Receive Date: 20060228
  Receipt Date: 20060224
  Transmission Date: 20060701
  Serious: Yes (Hospitalization)
  Sender: FDA-Public Use
  Company Number: DE-2005-027519

PATIENT
  Age: 35 Year
  Sex: Female

DRUGS (1)
  1. YASMIN [Suspect]
     Indication: CONTRACEPTION
     Dosage: 1 TAB(S), 21D/28D, ORAL
     Route: 048
     Dates: start: 20020101, end: 20051217

REACTIONS (13)
  - DIZZINESS [None]
  - ECZEMA [None]
  - HEARING IMPAIRED [None]
  - HYPOTENSION [None]
  - IMPAIRED DRIVING ABILITY [None]
  - MUSCLE RIGIDITY [None]
  - MUSCULOSKELETAL STIFFNESS [None]
  - NAUSEA [None]
  - PHOTOSENSITIVITY REACTION [None]
  - PRURITUS [None]
  - TINNITUS [None]
  - URTICARIA GENERALISED [None]
  - VERTIGO [None]
